FAERS Safety Report 8889339 (Version 1)
Quarter: 2012Q4

REPORT INFORMATION
  Report Type: Spontaneous
  Country: US (occurrence: None)
  Receive Date: 20121102
  Receipt Date: 20121102
  Transmission Date: 20130627
  Serious: No
  Sender: FDA-Public Use
  Company Number: None

PATIENT

DRUGS (1)
  1. ZOLPIDEM [Suspect]
     Dates: start: 20121023, end: 20121023

REACTIONS (5)
  - Fall [None]
  - Middle insomnia [None]
  - Musculoskeletal disorder [None]
  - Urinary incontinence [None]
  - Tremor [None]
